FAERS Safety Report 15631030 (Version 2)
Quarter: 2018Q4

REPORT INFORMATION
  Report Type: Spontaneous
  Country: US (occurrence: US)
  Receive Date: 20181119
  Receipt Date: 20181123
  Transmission Date: 20190205
  Serious: Yes (Death, Other)
  Sender: FDA-Public Use
  Company Number: US-009507513-1811USA005352

PATIENT
  Age: 82 Year
  Sex: Male

DRUGS (1)
  1. KEYTRUDA [Suspect]
     Active Substance: PEMBROLIZUMAB
     Dosage: 1 DOSAGE FORM
     Dates: start: 20181105

REACTIONS (2)
  - Metastatic malignant melanoma [Unknown]
  - Death [Fatal]

NARRATIVE: CASE EVENT DATE: 20181109
